FAERS Safety Report 5189615-3 (Version None)
Quarter: 2006Q4

REPORT INFORMATION
  Report Type: 
  Country: None (occurrence: None)
  Receive Date: 20061215
  Receipt Date: 20061206
  Transmission Date: 20070319
  Serious: Yes (Hospitalization)
  Sender: FDA-Public Use
  Company Number: 2006-06082

PATIENT
  Age: 28 Year
  Sex: Female

DRUGS (3)
  1. TRELSTAR [Suspect]
     Indication: IN VITRO FERTILISATION
     Dosage: 1.5 MG (1.5MG, 1 IN 28 D), INTRAMUSCULAR
     Route: 030
     Dates: start: 20000601, end: 20000601
  2. GONAL-F [Suspect]
     Indication: IN VITRO FERTILISATION
     Dosage: SEE IMAGE
     Route: 058
     Dates: start: 20000614, end: 20000618
  3. GONAL-F [Suspect]
     Indication: IN VITRO FERTILISATION
     Dosage: SEE IMAGE
     Route: 058
     Dates: start: 20000619, end: 20000622

REACTIONS (1)
  - OVARIAN HYPERSTIMULATION SYNDROME [None]
